FAERS Safety Report 11398246 (Version 1)
Quarter: 2015Q3

REPORT INFORMATION
  Report Type: Spontaneous
  Country: US (occurrence: US)
  Receive Date: 20150820
  Receipt Date: 20150820
  Transmission Date: 20151125
  Serious: No
  Sender: FDA-Public Use
  Company Number: US-ASTRAZENECA-2015SE79446

PATIENT
  Age: 52 Year
  Sex: Female
  Weight: 73 kg

DRUGS (10)
  1. NEXIUM 24HR [Suspect]
     Active Substance: ESOMEPRAZOLE MAGNESIUM
     Indication: OESOPHAGEAL PAIN
     Route: 048
     Dates: start: 20150804
  2. NEXIUM 24HR [Suspect]
     Active Substance: ESOMEPRAZOLE MAGNESIUM
     Indication: OESOPHAGEAL PAIN
     Dosage: DOSE AND FREQUENCY UNKNOWN
     Route: 048
     Dates: start: 2015
  3. NEXIUM 24HR [Suspect]
     Active Substance: ESOMEPRAZOLE MAGNESIUM
     Indication: DYSPEPSIA
     Route: 048
     Dates: start: 20150804
  4. PROBIOTICS [Concomitant]
     Active Substance: PROBIOTICS NOS
  5. NEXIUM 24HR [Suspect]
     Active Substance: ESOMEPRAZOLE MAGNESIUM
     Indication: GASTROOESOPHAGEAL REFLUX DISEASE
     Route: 048
     Dates: start: 20150804
  6. NEXIUM [Suspect]
     Active Substance: ESOMEPRAZOLE MAGNESIUM
     Route: 048
  7. ASPIRIN. [Concomitant]
     Active Substance: ASPIRIN
     Indication: PLATELET DISORDER
     Dosage: 81MG, THREE TIMES A WEEK, MONDAY, WEDNESDAY, AND FRIDAY
  8. NEXIUM 24HR [Suspect]
     Active Substance: ESOMEPRAZOLE MAGNESIUM
     Indication: GASTROOESOPHAGEAL REFLUX DISEASE
     Dosage: DOSE AND FREQUENCY UNKNOWN
     Route: 048
     Dates: start: 2015
  9. VITAMIN D [Concomitant]
     Active Substance: CHOLECALCIFEROL
     Dosage: UNK, 1X/DAY
  10. NEXIUM 24HR [Suspect]
     Active Substance: ESOMEPRAZOLE MAGNESIUM
     Indication: DYSPEPSIA
     Dosage: DOSE AND FREQUENCY UNKNOWN
     Route: 048
     Dates: start: 2015

REACTIONS (14)
  - Reflux laryngitis [Unknown]
  - Oesophagitis [Unknown]
  - Chest discomfort [Not Recovered/Not Resolved]
  - Memory impairment [Unknown]
  - Gastrooesophageal reflux disease [Not Recovered/Not Resolved]
  - Abdominal discomfort [Unknown]
  - Rhinorrhoea [Not Recovered/Not Resolved]
  - Intentional product misuse [Not Recovered/Not Resolved]
  - Drug ineffective for unapproved indication [Not Recovered/Not Resolved]
  - Dyspepsia [Not Recovered/Not Resolved]
  - Chest pain [Unknown]
  - Dysphonia [Not Recovered/Not Resolved]
  - Off label use [Unknown]
  - Drug ineffective [Unknown]

NARRATIVE: CASE EVENT DATE: 20150803
